FAERS Safety Report 8919408 (Version 1)
Quarter: 2012Q4

REPORT INFORMATION
  Report Type: 
  Country: US (occurrence: US)
  Receive Date: 20121121
  Receipt Date: 20121121
  Transmission Date: 20130627
  Serious: No
  Sender: FDA-Public Use
  Company Number: US-PFIZER INC-2012290588

PATIENT
  Age: 76 Year
  Sex: Male
  Weight: 80.73 kg

DRUGS (8)
  1. LIPITOR [Suspect]
     Indication: HIGH CHOLESTEROL
     Dosage: 40 mg, 1x/day
     Route: 048
  2. ATENOLOL [Concomitant]
     Dosage: UNK
  3. POLYETHYLENE GLYCOL [Concomitant]
     Dosage: UNK
  4. TAMSULOSIN [Concomitant]
     Dosage: 0.4 mg, UNK
  5. FINASTERIDE [Concomitant]
     Dosage: 5 mg, UNK
  6. MELOXICAM [Concomitant]
     Dosage: 7.5 mg, UNK
  7. NIACIN [Concomitant]
     Dosage: 500 mg, 4x/day
  8. ASPIRIN [Concomitant]
     Dosage: UNK, 1x/day

REACTIONS (1)
  - Sleep disorder [Not Recovered/Not Resolved]
